FAERS Safety Report 16024525 (Version 2)
Quarter: 2019Q1

REPORT INFORMATION
  Report Type: Report from Study
  Country: US (occurrence: US)
  Receive Date: 20190301
  Receipt Date: 20190312
  Transmission Date: 20190418
  Serious: Yes (Hospitalization)
  Sender: FDA-Public Use
  Company Number: US-ACTELION-A-NJ2018-181468

PATIENT
  Age: 80 Year
  Sex: Male
  Weight: 112.02 kg

DRUGS (2)
  1. AMLODIPINE [Concomitant]
     Active Substance: AMLODIPINE BESYLATE
  2. OPSUMIT [Suspect]
     Active Substance: MACITENTAN
     Indication: PULMONARY ARTERIAL HYPERTENSION
     Dosage: 10 MG, QD
     Route: 048

REACTIONS (5)
  - Dyspnoea exertional [Unknown]
  - Renal disorder [Unknown]
  - Dizziness [Unknown]
  - Pulmonary oedema [Unknown]
  - Syncope [Unknown]

NARRATIVE: CASE EVENT DATE: 201810
